FAERS Safety Report 5506057-9 (Version None)
Quarter: 2007Q4

REPORT INFORMATION
  Report Type: 
  Country: None (occurrence: None)
  Receive Date: 20071105
  Receipt Date: 20071101
  Transmission Date: 20080405
  Serious: Yes (Death, Life-Threatening, Hospitalization)
  Sender: FDA-Public Use
  Company Number: PHBS2007JP18314

PATIENT

DRUGS (1)
  1. DIOVAN [Suspect]
     Dosage: 80 MG/D
     Route: 048
     Dates: end: 20071014

REACTIONS (4)
  - BLOOD GLUCOSE DECREASED [None]
  - CEREBRAL INFARCTION [None]
  - FALL [None]
  - HYPOGLYCAEMIA [None]
